FAERS Safety Report 23070322 (Version 2)
Quarter: 2023Q4

REPORT INFORMATION
  Report Type: Report from Study
  Country: IT (occurrence: IT)
  Receive Date: 20231016
  Receipt Date: 20231017
  Transmission Date: 20240110
  Serious: Yes (Death)
  Sender: FDA-Public Use
  Company Number: IT-AMGEN-ITANI2023182868

PATIENT
  Sex: Male

DRUGS (3)
  1. SOTORASIB [Suspect]
     Active Substance: SOTORASIB
     Indication: Non-small cell lung cancer
     Dosage: UNK
     Route: 065
     Dates: start: 20220509
  2. SOTORASIB [Suspect]
     Active Substance: SOTORASIB
     Dosage: UNK
     Route: 065
     Dates: start: 20220606
  3. SOTORASIB [Suspect]
     Active Substance: SOTORASIB
     Dosage: UNK
     Route: 065
     Dates: start: 20220704, end: 20220831

REACTIONS (1)
  - Death [Fatal]
